FAERS Safety Report 23042298 (Version 4)
Quarter: 2024Q1

REPORT INFORMATION
  Report Type: Report from Study
  Country: US (occurrence: US)
  Receive Date: 20231008
  Receipt Date: 20240122
  Transmission Date: 20240410
  Serious: Yes (Other)
  Sender: FDA-Public Use
  Company Number: US-002147023-NVSC2023US214248

PATIENT

DRUGS (1)
  1. KESIMPTA [Suspect]
     Active Substance: OFATUMUMAB
     Indication: Multiple sclerosis
     Dosage: UNK
     Route: 065
     Dates: start: 20230203

REACTIONS (5)
  - Multiple sclerosis [Unknown]
  - Fatigue [Unknown]
  - Dizziness [Unknown]
  - Injection site pain [Unknown]
  - Inappropriate schedule of product administration [Unknown]
